FAERS Safety Report 5305589-6 (Version None)
Quarter: 2007Q2

REPORT INFORMATION
  Report Type: 
  Country: None (occurrence: None)
  Receive Date: 20070424
  Receipt Date: 20070413
  Transmission Date: 20071010
  Serious: Yes (Hospitalization, Other)
  Sender: FDA-Public Use
  Company Number: US-AMGEN-STX215871

PATIENT
  Sex: Male
  Weight: 98.5 kg

DRUGS (5)
  1. ENBREL [Suspect]
     Indication: PSORIATIC ARTHROPATHY
     Route: 058
     Dates: start: 19980101
  2. ZETIA [Concomitant]
  3. TRICOR [Concomitant]
  4. GLUCOPHAGE [Concomitant]
  5. CORTICOSTEROID NOS [Concomitant]
     Route: 061
     Dates: end: 20050101

REACTIONS (10)
  - DIABETES MELLITUS NON-INSULIN-DEPENDENT [None]
  - DISORIENTATION [None]
  - HEPATIC STEATOSIS [None]
  - HYPERLIPIDAEMIA [None]
  - MIGRAINE [None]
  - NASOPHARYNGITIS [None]
  - PLANTAR FASCIITIS [None]
  - ROSACEA [None]
  - SKIN CANCER [None]
  - WEIGHT INCREASED [None]
